FAERS Safety Report 16859904 (Version 1)
Quarter: 2019Q3

REPORT INFORMATION
  Report Type: Spontaneous
  Country: US (occurrence: US)
  Receive Date: 20190805
  Receipt Date: 20190805
  Transmission Date: 20191005
  Serious: Yes (Other)
  Sender: FDA-Public Use
  Company Number: None

PATIENT
  Age: 79 Year
  Sex: Male

DRUGS (1)
  1. WARFARIN [Suspect]
     Active Substance: WARFARIN

REACTIONS (6)
  - International normalised ratio increased [None]
  - Epistaxis [None]
  - Haemoglobin decreased [None]
  - Melaena [None]
  - Dizziness [None]
  - Mental status changes [None]

NARRATIVE: CASE EVENT DATE: 20180328
